FAERS Safety Report 8560874-X (Version None)
Quarter: 2012Q3

REPORT INFORMATION
  Report Type: 
  Country: None (occurrence: None)
  Receive Date: 20120802
  Receipt Date: 20120720
  Transmission Date: 20120928
  Serious: Yes (Hospitalization, Other)
  Sender: FDA-Public Use
  Company Number: US-MSD-1107USA03268

PATIENT

DRUGS (2)
  1. ALENDRONATE SODIUM [Suspect]
     Dosage: 70 MG, UNK
     Dates: start: 20080310
  2. FOSAMAX [Suspect]
     Indication: OSTEOPOROSIS
     Dosage: 70 MG, QW
     Route: 048
     Dates: end: 20100901

REACTIONS (23)
  - HYPERTENSION [None]
  - HYPOKALAEMIA [None]
  - URINARY TRACT INFECTION [None]
  - DEPRESSION [None]
  - GASTROOESOPHAGEAL REFLUX DISEASE [None]
  - FEMUR FRACTURE [None]
  - OESOPHAGEAL DISORDER [None]
  - APPENDICECTOMY [None]
  - CHOLECYSTECTOMY [None]
  - INTERVERTEBRAL DISCITIS [None]
  - SCIATICA [None]
  - ARTHRITIS [None]
  - INSOMNIA [None]
  - GASTRITIS [None]
  - CLOSTRIDIUM DIFFICILE COLITIS [None]
  - EAR OPERATION [None]
  - DEMENTIA [None]
  - BLOOD CHOLESTEROL INCREASED [None]
  - TONSILLECTOMY [None]
  - OSTEOMYELITIS [None]
  - OSTEOARTHRITIS [None]
  - GLAUCOMA [None]
  - FALL [None]
